FAERS Safety Report 9154925 (Version 1)
Quarter: 2013Q1

REPORT INFORMATION
  Report Type: Report from Study
  Country: US (occurrence: US)
  Receive Date: 20130311
  Receipt Date: 20130311
  Transmission Date: 20140127
  Serious: No
  Sender: FDA-Public Use
  Company Number: US-ABBOTT-12P-163-0967412-00

PATIENT
  Sex: Female

DRUGS (5)
  1. LUPRON DEPOT 11.25 MG [Suspect]
     Indication: CONVULSION
     Route: 030
     Dates: start: 201205
  2. LEXAPRO [Suspect]
     Indication: MOOD ALTERED
     Dates: start: 201206
  3. DEPAKOTE [Concomitant]
     Indication: CONVULSION
  4. TOPROL XL [Concomitant]
     Indication: MIGRAINE
  5. ZONISAMIDE [Concomitant]
     Indication: PRODUCT USED FOR UNKNOWN INDICATION

REACTIONS (3)
  - Off label use [Unknown]
  - Abnormal dreams [Not Recovered/Not Resolved]
  - Mood altered [Recovering/Resolving]
